FAERS Safety Report 4495357-X (Version None)
Quarter: 2004Q4

REPORT INFORMATION
  Report Type: 
  Country: None (occurrence: None)
  Receive Date: 20041108
  Receipt Date: 20041029
  Transmission Date: 20050328
  Serious: Yes (Death, Hospitalization)
  Sender: FDA-Public Use
  Company Number: US-BRISTOL-MYERS SQUIBB COMPANY-12756144

PATIENT
  Age: 65 Year
  Sex: Male

DRUGS (11)
  1. KENALOG-40 [Suspect]
     Indication: SACROILIITIS
     Dates: start: 20020524, end: 20020814
  2. KENALOG-40 [Suspect]
     Indication: SPONDYLOSIS
     Dates: start: 20020524, end: 20020814
  3. LIDOCAINE [Suspect]
     Indication: SACROILIITIS
     Dosage: DOSE VALUE:  10 MG/ML
     Dates: start: 20020524, end: 20020814
  4. LIDOCAINE [Suspect]
     Indication: SPONDYLOSIS
     Dosage: DOSE VALUE:  10 MG/ML
     Dates: start: 20020524, end: 20020814
  5. NAROPIN [Suspect]
     Indication: SACROILIITIS
     Dosage: DOSE:  0.5 MG/ML.
     Dates: start: 20020524, end: 20020814
  6. NAROPIN [Suspect]
     Indication: SPONDYLOSIS
     Dosage: DOSE:  0.5 MG/ML.
     Dates: start: 20020524, end: 20020814
  7. VERSED [Concomitant]
     Route: 042
     Dates: start: 20020524, end: 20020814
  8. FENTANYL [Concomitant]
     Dates: start: 20020524, end: 20020814
  9. TRAZODONE HCL [Concomitant]
  10. CELEBREX [Concomitant]
  11. NEURONTIN [Concomitant]

REACTIONS (5)
  - ACUTE RESPIRATORY FAILURE [None]
  - CLOSTRIDIAL INFECTION [None]
  - GAS GANGRENE [None]
  - RENAL FAILURE ACUTE [None]
  - SEPTIC SHOCK [None]
